FAERS Safety Report 15478935 (Version 2)
Quarter: 2018Q4

REPORT INFORMATION
  Report Type: Spontaneous
  Country: TR (occurrence: TR)
  Receive Date: 20181009
  Receipt Date: 20181009
  Transmission Date: 20190205
  Serious: Yes (Hospitalization, Other)
  Sender: FDA-Public Use
  Company Number: TR-UNICHEM PHARMACEUTICALS (USA) INC-UCM201809-000246

PATIENT
  Age: 15 Year
  Sex: Male

DRUGS (2)
  1. LEVETIRACETAM. [Concomitant]
     Active Substance: LEVETIRACETAM
     Indication: SEIZURE
  2. DIVALPROEX SODIUM. [Suspect]
     Active Substance: DIVALPROEX SODIUM
     Indication: SEIZURE
     Route: 042

REACTIONS (5)
  - Metabolic encephalopathy [Recovering/Resolving]
  - Hyperammonaemia [Recovered/Resolved]
  - Lethargy [Unknown]
  - Condition aggravated [Unknown]
  - Loss of consciousness [Recovering/Resolving]
